FAERS Safety Report 7177458-0 (Version None)
Quarter: 2010Q4

REPORT INFORMATION
  Report Type: 
  Country: None (occurrence: None)
  Receive Date: 20101220
  Receipt Date: 20101210
  Transmission Date: 20110411
  Serious: Yes (Hospitalization)
  Sender: FDA-Public Use
  Company Number: FR-JNJFOC-20101204559

PATIENT
  Sex: Male

DRUGS (10)
  1. PREZISTA [Suspect]
     Indication: HIV INFECTION
     Route: 048
  2. BECLOMETHASONE DIPROPIONATE [Suspect]
     Indication: BRONCHITIS CHRONIC
     Route: 055
  3. PREDNISONE [Suspect]
     Indication: LUNG DISORDER
     Route: 048
  4. METHYLPREDNISOLONE [Suspect]
     Indication: LUNG DISORDER
     Route: 042
  5. NORVIR [Suspect]
     Indication: HIV INFECTION
     Route: 048
  6. TRUVADA [Suspect]
     Indication: HIV INFECTION
     Route: 048
  7. SPIRIVA [Concomitant]
     Indication: PRODUCT USED FOR UNKNOWN INDICATION
  8. BACTRIM DS [Concomitant]
     Indication: PRODUCT USED FOR UNKNOWN INDICATION
  9. XATRAL [Concomitant]
     Indication: PRODUCT USED FOR UNKNOWN INDICATION
  10. IMOVANE [Concomitant]
     Indication: PRODUCT USED FOR UNKNOWN INDICATION

REACTIONS (2)
  - OSTEOPOROTIC FRACTURE [None]
  - SPINAL COMPRESSION FRACTURE [None]
